FAERS Safety Report 9410683 (Version 2)
Quarter: 2013Q4

REPORT INFORMATION
  Report Type: Spontaneous
  Country: US (occurrence: US)
  Receive Date: 20130719
  Receipt Date: 20131223
  Transmission Date: 20140711
  Serious: Yes (Hospitalization)
  Sender: FDA-Public Use
  Company Number: US-B.I. PHARMACEUTICALS,INC./RIDGEFIELD-2013-BI-20957BP

PATIENT
  Sex: Female
  Weight: 61.69 kg

DRUGS (7)
  1. PRADAXA [Suspect]
     Indication: ANTICOAGULANT THERAPY
     Dates: start: 20120423, end: 20120723
  2. ALBUTEROL [Concomitant]
  3. METOPROLOL [Concomitant]
  4. LASIX [Concomitant]
  5. SIMVASTATIN [Concomitant]
  6. LIPITOR [Concomitant]
  7. DILTIAZEM [Concomitant]

REACTIONS (4)
  - Gastrointestinal haemorrhage [Unknown]
  - Chronic obstructive pulmonary disease [Unknown]
  - Atrial fibrillation [Unknown]
  - Coagulopathy [Unknown]
